FAERS Safety Report 6460675-2 (Version None)
Quarter: 2009Q4

REPORT INFORMATION
  Report Type: 
  Country: None (occurrence: None)
  Receive Date: 20091125
  Receipt Date: 20091125
  Transmission Date: 20100525
  Serious: No
  Sender: FDA-Public Use
  Company Number: None

PATIENT
  Age: 37 Year
  Sex: Male
  Weight: 108.8633 kg

DRUGS (2)
  1. ORAL MIST-MOUTH SPRAY [Suspect]
     Dosage: QD
     Dates: start: 20091109, end: 20091112
  2. PROTONIX [Concomitant]

REACTIONS (1)
  - AGEUSIA [None]
